FAERS Safety Report 6722897-2 (Version None)
Quarter: 2010Q2

REPORT INFORMATION
  Report Type: 
  Country: None (occurrence: None)
  Receive Date: 20100511
  Receipt Date: 20100430
  Transmission Date: 20101027
  Serious: Yes (Other)
  Sender: FDA-Public Use
  Company Number: 2010US001467

PATIENT
  Age: 60 Year
  Sex: Male

DRUGS (3)
  1. AMBISOME [Suspect]
     Indication: POST PROCEDURAL INFECTION
     Dosage: IV NOS
     Route: 042
  2. FIRSTCIN (CEFOZOPRAN HYDROCHLORIDE) [Concomitant]
  3. MEROPENEM [Concomitant]

REACTIONS (1)
  - LOSS OF CONSCIOUSNESS [None]
